FAERS Safety Report 4343460-7 (Version None)
Quarter: 2004Q2

REPORT INFORMATION
  Report Type: 
  Country: None (occurrence: None)
  Receive Date: 20040419
  Receipt Date: 20040405
  Transmission Date: 20050107
  Serious: Yes (Hospitalization)
  Sender: FDA-Public Use
  Company Number: A-US2004-05665

PATIENT
  Age: 73 Year
  Sex: Female

DRUGS (13)
  1. TRACLEER [Suspect]
     Indication: PULMONARY HYPERTENSION
     Dosage: SEE IMAGE
     Route: 048
     Dates: start: 20030613, end: 20030712
  2. TRACLEER [Suspect]
     Indication: PULMONARY HYPERTENSION
     Dosage: SEE IMAGE
     Route: 048
     Dates: start: 20030713, end: 20040405
  3. EVISTA [Concomitant]
  4. LEVCOTHROID (LEVOTHYROXINE SODIUM) [Concomitant]
  5. SPIRONOLACTONE [Concomitant]
  6. POTASSIUM (POTASSIUM) [Concomitant]
  7. FURSEMIDE (FUROSEMIDE) [Concomitant]
  8. WARFARIN SODIUM [Concomitant]
  9. HYDROCODONE (HYDROCODONE) [Concomitant]
  10. XANAX [Concomitant]
  11. COMBIVENT [Concomitant]
  12. ACIPHEX [Concomitant]
  13. VITAMIN C (ASCORBIC ACID) [Concomitant]

REACTIONS (7)
  - ANAEMIA [None]
  - DIVERTICULUM INTESTINAL [None]
  - FAECAL OCCULT BLOOD POSITIVE [None]
  - OESOPHAGEAL CANDIDIASIS [None]
  - OESOPHAGITIS [None]
  - RECTAL ADENOMA [None]
  - RETICULOCYTE COUNT INCREASED [None]
